FAERS Safety Report 17641041 (Version 1)
Quarter: 2020Q2

REPORT INFORMATION
  Report Type: Spontaneous
  Country: CA (occurrence: CA)
  Receive Date: 20200407
  Receipt Date: 20200407
  Transmission Date: 20200713
  Serious: Yes (Hospitalization, Other)
  Sender: FDA-Public Use
  Company Number: CA-B.I. PHARMACEUTICALS,INC./RIDGEFIELD-2020-BI-018073

PATIENT
  Age: 75 Year
  Sex: Female

DRUGS (6)
  1. SINGULAIR [Suspect]
     Active Substance: MONTELUKAST SODIUM
     Indication: PRODUCT USED FOR UNKNOWN INDICATION
     Route: 065
  2. SPIRIVA [Suspect]
     Active Substance: TIOTROPIUM BROMIDE MONOHYDRATE
     Indication: ASTHMA
     Route: 065
  3. BREO ELLIPTA [Suspect]
     Active Substance: FLUTICASONE FUROATE\VILANTEROL TRIFENATATE
     Indication: ASTHMA
     Dosage: DOSAGE FORM: INHALATION
     Route: 065
  4. BISOPROLOL [Suspect]
     Active Substance: BISOPROLOL
     Indication: ASTHMA
     Route: 065
  5. MONTELUKAST [Suspect]
     Active Substance: MONTELUKAST SODIUM
     Indication: ASTHMA
     Route: 065
  6. SALBUTAMOL SULFATE [Suspect]
     Active Substance: ALBUTEROL SULFATE
     Indication: ASTHMA
     Route: 065

REACTIONS (15)
  - Eosinophilic granulomatosis with polyangiitis [Unknown]
  - Therapeutic product effect incomplete [Unknown]
  - Asthma [Unknown]
  - Sinusitis [Unknown]
  - Blood count abnormal [Unknown]
  - Colitis ulcerative [Unknown]
  - Nasal congestion [Unknown]
  - Loss of personal independence in daily activities [Unknown]
  - Sputum discoloured [Unknown]
  - Myocarditis [Unknown]
  - Dyspnoea [Unknown]
  - Pain [Unknown]
  - Polyp [Unknown]
  - Wheezing [Unknown]
  - Sleep disorder due to a general medical condition [Unknown]
